FAERS Safety Report 4485463-8 (Version None)
Quarter: 2004Q4

REPORT INFORMATION
  Report Type: 
  Country: None (occurrence: None)
  Receive Date: 20041022
  Receipt Date: 20041011
  Transmission Date: 20050328
  Serious: Yes (Hospitalization)
  Sender: FDA-Public Use
  Company Number: 2004CG02052

PATIENT
  Age: 82 Year
  Sex: Female

DRUGS (4)
  1. CRESTOR [Suspect]
     Dosage: 10 MG DAILY PO
     Route: 048
     Dates: start: 20040701, end: 20040820
  2. COUMADIN [Suspect]
     Indication: ARTERITIS
     Dosage: 1.5 DF DAILY PO
     Route: 048
     Dates: end: 20040820
  3. CORDARONE [Suspect]
     Dosage: 200 MG FIVE TIMES A WEEK
     Dates: start: 20040701, end: 20040820
  4. EFFEXOR [Suspect]
     Dates: end: 20040820

REACTIONS (5)
  - DRUG INTERACTION [None]
  - FALL [None]
  - HAEMATOMA [None]
  - INTERNATIONAL NORMALISED RATIO INCREASED [None]
  - PELVIC FRACTURE [None]
